FAERS Safety Report 13006916 (Version 2)
Quarter: 2016Q4

REPORT INFORMATION
  Report Type: Spontaneous
  Country: FR (occurrence: FR)
  Receive Date: 20161207
  Receipt Date: 20161229
  Transmission Date: 20170207
  Serious: Yes (Death, Other)
  Sender: FDA-Public Use
  Company Number: FR-EMCURE PHARMS-2016HTG00287

PATIENT
  Age: 61 Year
  Sex: Male

DRUGS (22)
  1. PARACETAMOL [Concomitant]
     Active Substance: ACETAMINOPHEN
     Dosage: 1 G, UNK
     Dates: start: 20161031, end: 20161101
  2. TAZOCILLINE [Concomitant]
     Active Substance: PIPERACILLIN SODIUM\TAZOBACTAM SODIUM
     Dosage: 4 G, UNK
     Route: 042
     Dates: start: 20161104, end: 20161104
  3. GAVISCON [Concomitant]
     Active Substance: ALUMINUM HYDROXIDE\MAGNESIUM CARBONATE
  4. ZELITREX [Concomitant]
     Active Substance: VALACYCLOVIR HYDROCHLORIDE
     Dosage: UNK
     Dates: start: 20161030, end: 20161104
  5. LASILIX [Concomitant]
     Active Substance: FUROSEMIDE
     Dosage: 40 MG, UNK
     Route: 042
     Dates: start: 20161101, end: 20161101
  6. CYTARABINE KABI [Suspect]
     Active Substance: CYTARABINE
     Indication: TRANSPLANT
     Dosage: 360 MG, 2X/DAY
     Route: 042
     Dates: start: 20161101, end: 20161104
  7. ZOPHREN [Concomitant]
     Active Substance: ONDANSETRON
     Dosage: 8 MG, UNK
     Route: 042
     Dates: start: 20161031, end: 20161104
  8. BICNU [Suspect]
     Active Substance: CARMUSTINE
     Indication: TRANSPLANT
     Dosage: 540 MG, ONCE
     Route: 042
     Dates: start: 20161031, end: 20161031
  9. BICNU [Suspect]
     Active Substance: CARMUSTINE
     Dosage: 180 MG, 2X/DAY
     Route: 042
  10. MESNA EG [Concomitant]
     Active Substance: MESNA
     Dosage: UNK
     Dates: start: 20161101, end: 20161104
  11. BICNU [Suspect]
     Active Substance: CARMUSTINE
     Dosage: 2700 MG, 1X/DAY
     Route: 042
  12. ENDOXAN [Suspect]
     Active Substance: CYCLOPHOSPHAMIDE
     Indication: TRANSPLANT
     Dosage: 2700 MG, 1X/DAY
     Route: 042
     Dates: start: 20161101, end: 20161104
  13. ETOPOPHOS [Suspect]
     Active Substance: ETOPOSIDE PHOSPHATE
     Indication: TRANSPLANT
     Dosage: 180 MG, 2X/DAY
     Route: 042
     Dates: start: 20161101, end: 20161101
  14. INEXIUM [Concomitant]
     Active Substance: ESOMEPRAZOLE
     Dosage: UNK
     Dates: start: 20161030, end: 20161104
  15. PARACETAMOL [Concomitant]
     Active Substance: ACETAMINOPHEN
     Dosage: 1 G, UNK
     Dates: start: 20161104, end: 20161104
  16. LASILIX [Concomitant]
     Active Substance: FUROSEMIDE
     Dosage: 40 MG, UNK
     Route: 042
     Dates: start: 20161104, end: 20161104
  17. BICNU [Suspect]
     Active Substance: CARMUSTINE
     Dosage: 360 MG, 2X/DAY
     Route: 042
  18. BICNU [Suspect]
     Active Substance: CARMUSTINE
     Dosage: 180 MG, 2X/DAY
     Route: 042
  19. ETOPOSIDE MYLAN [Suspect]
     Active Substance: ETOPOSIDE
     Indication: TRANSPLANT
     Dosage: 180 MG, 2X/DAY
     Route: 042
     Dates: start: 20161102, end: 20161104
  20. UNSPECIFIED PROTON PUMP INHIBITORS [Concomitant]
  21. NACL [Concomitant]
     Active Substance: SODIUM CHLORIDE
     Dosage: 1 L, UNK
     Dates: start: 20161101, end: 20161104
  22. EMEND [Concomitant]
     Active Substance: APREPITANT
     Dosage: 80 MG, UNK
     Dates: start: 20161102, end: 20161103

REACTIONS (29)
  - Aplasia [Unknown]
  - Abdominal pain upper [Unknown]
  - Tachypnoea [None]
  - Hypertension [None]
  - Procedural pneumothorax [None]
  - Hypotension [None]
  - Hyperkalaemia [Unknown]
  - Pyrexia [Recovered/Resolved]
  - Ejection fraction decreased [None]
  - Pulmonary toxicity [Fatal]
  - Anuria [Unknown]
  - Hypoxia [None]
  - Pulmonary oedema [None]
  - Multiple organ dysfunction syndrome [Fatal]
  - Staphylococcus test positive [Recovered/Resolved]
  - Fluid overload [Unknown]
  - Acute respiratory distress syndrome [None]
  - Pneumonia [None]
  - Circulatory collapse [None]
  - Lung disorder [None]
  - Rales [None]
  - Thrombocytopenia [None]
  - Sinus tachycardia [None]
  - Cardiotoxicity [Fatal]
  - Intestinal ischaemia [Unknown]
  - Hyperhidrosis [Unknown]
  - Atrial fibrillation [None]
  - Mucosal haemorrhage [None]
  - Transplant [None]

NARRATIVE: CASE EVENT DATE: 2016
